FAERS Safety Report 5985201-3 (Version None)
Quarter: 2008Q4

REPORT INFORMATION
  Report Type: 
  Country: None (occurrence: None)
  Receive Date: 20081203
  Receipt Date: 20081117
  Transmission Date: 20090506
  Serious: Yes (Other)
  Sender: FDA-Public Use
  Company Number: 16997

PATIENT
  Age: 60 Year
  Sex: Female
  Weight: 81.6475 kg

DRUGS (10)
  1. MORPHINE SULFATE [Suspect]
     Indication: PAIN
     Dosage: 15  MG PO Q8H
     Dates: start: 20080215, end: 20080306
  2. DEXTROAMPHETAMINE [Concomitant]
  3. CLONAZEPAM [Concomitant]
  4. VITAMIN D [Concomitant]
  5. NABILONE (CESAMET) [Concomitant]
  6. VITAMIN B COMPLEX CAP [Concomitant]
  7. HYDROMORPHONE HCL [Concomitant]
  8. CALCIUM/MAGNESIUM [Concomitant]
  9. ACETAMINOPHEN AND OXYCODONE HCL [Concomitant]
  10. GINSENG [Concomitant]

REACTIONS (10)
  - ABASIA [None]
  - ANOREXIA [None]
  - DEPRESSION [None]
  - FALL [None]
  - HEADACHE [None]
  - NAUSEA [None]
  - PALPITATIONS [None]
  - PRODUCT QUALITY ISSUE [None]
  - SUICIDAL IDEATION [None]
  - WEIGHT DECREASED [None]
